FAERS Safety Report 19784074 (Version 1)
Quarter: 2021Q3

REPORT INFORMATION
  Report Type: Spontaneous
  Country: ZA (occurrence: ZA)
  Receive Date: 20210903
  Receipt Date: 20210903
  Transmission Date: 20211014
  Serious: Yes (Other)
  Sender: FDA-Public Use
  Company Number: ZA-VIFOR (INTERNATIONAL) INC.-VIT-2021-06841

PATIENT
  Sex: Male

DRUGS (4)
  1. MIRCERA [Suspect]
     Active Substance: METHOXY POLYETHYLENE GLYCOL-EPOETIN BETA
     Dosage: PEFILLED SYRINGES 150 MICROGRAM/0.3 ML 10
     Route: 065
  2. EPOETIN BETA [Suspect]
     Active Substance: ERYTHROPOIETIN
     Route: 042
     Dates: start: 202005
  3. MIRCERA [Suspect]
     Active Substance: METHOXY POLYETHYLENE GLYCOL-EPOETIN BETA
     Indication: CHRONIC KIDNEY DISEASE
     Dosage: PEFILLED SYRINGES 150 MICROGRAM/0.3 ML 10
     Route: 042
     Dates: start: 201711, end: 201906
  4. EPOETIN BETA [Suspect]
     Active Substance: ERYTHROPOIETIN
     Indication: PRODUCT USED FOR UNKNOWN INDICATION
     Route: 042
     Dates: start: 201906, end: 202005

REACTIONS (3)
  - Aplasia pure red cell [Unknown]
  - Vitamin B12 increased [Unknown]
  - Blood folate increased [Unknown]
